FAERS Safety Report 13239719 (Version 2)
Quarter: 2017Q1

REPORT INFORMATION
  Report Type: Spontaneous
  Country: US (occurrence: US)
  Receive Date: 20170216
  Receipt Date: 20170222
  Transmission Date: 20170428
  Serious: No
  Sender: FDA-Public Use
  Company Number: US-PFIZER INC-2016601742

PATIENT
  Age: 79 Year
  Sex: Female
  Weight: 59 kg

DRUGS (21)
  1. ASPIRIN (E.C.) [Concomitant]
     Active Substance: ASPIRIN
     Dosage: 81 MG, DAILY
     Route: 048
  2. PREVNAR 13 [Concomitant]
     Active Substance: PNEUMOCOCCAL 13-VALENT CONJUGATE VACCINE
     Indication: IMMUNISATION
     Dosage: 0.5 ML, UNK
     Route: 030
  3. REVATIO [Suspect]
     Active Substance: SILDENAFIL CITRATE
     Indication: PULMONARY ARTERIAL HYPERTENSION
     Dosage: 20 MG, 3X/DAY
     Route: 048
  4. ULTRAM [Concomitant]
     Active Substance: TRAMADOL HYDROCHLORIDE
     Dosage: 50 MG, 2X/DAY
     Route: 048
  5. VITAMIN B COMPLEX [Concomitant]
     Active Substance: CYANOCOBALAMIN\DEXPANTHENOL\NIACINAMIDE\PYRIDOXINE HYDROCHLORIDE\RIBOFLAVIN 5^-PHOSPHATE SODIUM\THIAMINE HYDROCHLORIDE\VITAMIN B COMPLEX
     Dosage: 1 DF, DAILY
     Route: 048
  6. MEVACOR [Concomitant]
     Active Substance: LOVASTATIN
     Dosage: 40 MG, 1X/DAY (NIGHTLY)
     Route: 048
  7. RESTASIS [Concomitant]
     Active Substance: CYCLOSPORINE
     Dosage: 1 GTT, 2X/DAY
     Route: 047
  8. REVATIO [Suspect]
     Active Substance: SILDENAFIL CITRATE
     Dosage: 60 MG, 3X/DAY
     Route: 048
  9. KLONOPIN [Concomitant]
     Active Substance: CLONAZEPAM
     Indication: ANXIETY
     Dosage: 0.25 MG, AS NEEDED (NIGHTLY)
     Route: 048
  10. GLUCOPHAGE [Concomitant]
     Active Substance: METFORMIN HYDROCHLORIDE
     Dosage: 500 MG, 1X/DAY (WITH BREAKFAST)
     Route: 048
  11. FLONASE [Concomitant]
     Active Substance: FLUTICASONE PROPIONATE
     Dosage: UNK UNK, AS NEEDED (50 MCG/ACT)
     Route: 045
  12. PENNSAID [Concomitant]
     Active Substance: DICLOFENAC SODIUM
     Dosage: UNK, 2X/DAY [APPLY TWO PUMPS ]
     Route: 061
  13. HYDRODIURIL [Concomitant]
     Active Substance: HYDROCHLOROTHIAZIDE
     Dosage: 25 MG, DAILY
     Route: 048
  14. MOBIC [Concomitant]
     Active Substance: MELOXICAM
     Dosage: 7.5 MG, 2X/DAY
  15. PROBIOTIC ACIDIPHILUS [Concomitant]
     Dosage: 1 DF, DAILY (SOMETIMES)
     Route: 048
  16. FLUCONAZOLE. [Concomitant]
     Active Substance: FLUCONAZOLE
     Dosage: 0.5 ML, UNK
     Route: 030
  17. MOBIC [Concomitant]
     Active Substance: MELOXICAM
     Dosage: 15 MG, AS NEEDED
     Route: 048
  18. COZAAR [Concomitant]
     Active Substance: LOSARTAN POTASSIUM
     Dosage: 100 MG, DAILY
     Route: 048
  19. FISH OIL OMEGA 3 [Concomitant]
     Active Substance: FISH OIL
     Dosage: 2000 MG, DAILY (TAKE 2 GRAMS)
     Route: 048
  20. OSCAL 500+D [Concomitant]
     Dosage: UNK UNK, DAILY (TAKE 500-200 MG-UNIT)
     Route: 048
  21. PROTOPIC [Concomitant]
     Active Substance: TACROLIMUS
     Dosage: UNK [1 APPLICATION APPLY TO THE SCALP AT BEDTIME]

REACTIONS (1)
  - Prescribed overdose [Unknown]
